FAERS Safety Report 8170521-7 (Version None)
Quarter: 2012Q1

REPORT INFORMATION
  Report Type: 
  Country: None (occurrence: None)
  Receive Date: 20120228
  Receipt Date: 20120215
  Transmission Date: 20120608
  Serious: Yes (Other)
  Sender: FDA-Public Use
  Company Number: DE-CELGENEUS-062-21880-12021801

PATIENT
  Age: 64 Year
  Sex: Male
  Weight: 87 kg

DRUGS (14)
  1. LORATADINE [Concomitant]
     Indication: INFECTION PROPHYLAXIS
     Dosage: 10 MILLIGRAM
     Route: 048
     Dates: start: 20120101, end: 20120101
  2. LENOGRASTIM [Suspect]
     Indication: MULTIPLE MYELOMA
     Route: 058
     Dates: start: 20110821, end: 20110830
  3. ACYCLOVIR [Concomitant]
     Indication: INFECTION PROPHYLAXIS
     Dosage: 400 MILLIGRAM
     Route: 048
     Dates: start: 20120101
  4. CHEMOTHERAPEUTICS NOS [Suspect]
     Indication: MULTIPLE MYELOMA
     Route: 058
     Dates: start: 20110821, end: 20110830
  5. OXAZEPAM [Concomitant]
     Indication: SLEEP DISORDER
     Route: 048
     Dates: start: 20120101, end: 20120101
  6. COTRIM DS [Concomitant]
     Indication: INFECTION PROPHYLAXIS
     Dosage: 411.4286 MILLIGRAM
     Route: 048
  7. DILTIAZEM HCL [Concomitant]
     Indication: HYPERTENSION
     Dosage: 180 MILLIGRAM
     Route: 048
     Dates: start: 20110325
  8. REVLIMID [Suspect]
     Indication: MULTIPLE MYELOMA
     Dosage: 25 MILLIGRAM
     Route: 048
     Dates: start: 20110510, end: 20110801
  9. ASPIRIN [Concomitant]
     Indication: THROMBOSIS PROPHYLAXIS
     Dosage: 100 MILLIGRAM
     Route: 048
     Dates: start: 20110509
  10. MELPHALAN [Suspect]
     Indication: MULTIPLE MYELOMA
     Route: 041
     Dates: start: 20110920
  11. OMEPRAZOLE [Concomitant]
     Dosage: 40 MILLIGRAM
     Route: 048
     Dates: start: 20000101
  12. DEXAMETHASONE [Suspect]
     Indication: MULTIPLE MYELOMA
     Dosage: 40 MILLIGRAM
     Route: 065
     Dates: start: 20110510, end: 20110802
  13. MICARDIS [Concomitant]
     Indication: HYPERTENSION
     Dosage: 80 MILLIGRAM
     Route: 048
     Dates: start: 20030708, end: 20120101
  14. ALBUTEROL [Concomitant]
     Indication: CHRONIC OBSTRUCTIVE PULMONARY DISEASE
     Dosage: 1 HUB
     Route: 048
     Dates: start: 20120101

REACTIONS (1)
  - MALIGNANT MELANOMA IN SITU [None]
